FAERS Safety Report 9369588 (Version 1)
Quarter: 2013Q2

REPORT INFORMATION
  Report Type: Report from Study
  Country: BE (occurrence: BE)
  Receive Date: 20130626
  Receipt Date: 20130626
  Transmission Date: 20140414
  Serious: Yes (Death)
  Sender: FDA-Public Use
  Company Number: BE-ROCHE-1240954

PATIENT
  Age: 78 Year
  Sex: Female
  Weight: 72 kg

DRUGS (5)
  1. BEVACIZUMAB [Suspect]
     Indication: COLORECTAL CANCER METASTATIC
     Route: 042
     Dates: start: 20120813, end: 20121207
  2. OXALIPLATIN [Suspect]
     Indication: COLORECTAL CANCER METASTATIC
     Route: 042
     Dates: start: 20120813, end: 20121207
  3. LEUCOVORIN CALCIUM [Suspect]
     Indication: COLORECTAL CANCER METASTATIC
     Route: 042
     Dates: start: 20120813, end: 20121207
  4. 5-FU [Suspect]
     Indication: COLORECTAL CANCER METASTATIC
     Route: 050
     Dates: start: 20120813, end: 20121207
  5. 5-FU [Suspect]
     Route: 050
     Dates: start: 20120813, end: 20121207

REACTIONS (2)
  - Hepatic haemorrhage [Fatal]
  - Neoplasm progression [Fatal]
